FAERS Safety Report 6458093 (Version 9)
Quarter: 2017Q1

REPORT INFORMATION
  Report Type: Spontaneous
  Country: US (occurrence: US)
  Receive Date: 20071102
  Receipt Date: 20170210
  Transmission Date: 20170429
  Serious: Yes (Death)
  Sender: FDA-Public Use
  Company Number: US-JNJFOC-20071007225

PATIENT
  Age: 44 Year
  Sex: Male
  Weight: 112.49 kg

DRUGS (1)
  1. DURAGESIC [Suspect]
     Active Substance: FENTANYL
     Indication: PAIN
     Route: 062

REACTIONS (2)
  - Toxicity to various agents [Fatal]
  - Product quality issue [Unknown]

NARRATIVE: CASE EVENT DATE: 20051103
